FAERS Safety Report 8267219-3 (Version None)
Quarter: 2012Q2

REPORT INFORMATION
  Report Type: 
  Country: None (occurrence: None)
  Receive Date: 20120409
  Receipt Date: 20120404
  Transmission Date: 20120825
  Serious: Yes (Death)
  Sender: FDA-Public Use
  Company Number: US-AMGEN-USASP2011022806

PATIENT
  Sex: Female

DRUGS (3)
  1. ENBREL [Suspect]
     Indication: RHEUMATOID ARTHRITIS
     Dosage: 50 MG, QWK
     Dates: start: 20090501
  2. ENBREL [Suspect]
  3. ENBREL [Suspect]

REACTIONS (4)
  - CYSTITIS [None]
  - DEATH [None]
  - URINARY INCONTINENCE [None]
  - UPPER-AIRWAY COUGH SYNDROME [None]
